FAERS Safety Report 6389677-1 (Version None)
Quarter: 2009Q4

REPORT INFORMATION
  Report Type: 
  Country: None (occurrence: None)
  Receive Date: 20091002
  Receipt Date: 20091002
  Transmission Date: 20100525
  Serious: Yes (Death)
  Sender: FDA-Public Use
  Company Number: None

PATIENT
  Sex: Male

DRUGS (1)
  1. REVLIMID [Suspect]
     Indication: WALDENSTROM'S MACROGLOBULINAEMIA
     Dosage: REVLIMID 5MG EVERY 3 DAYS ORALLY
     Route: 048

REACTIONS (2)
  - RESPIRATORY FAILURE [None]
  - SEPSIS [None]
